FAERS Safety Report 10003662 (Version 2)
Quarter: 2014Q1

REPORT INFORMATION
  Report Type: Spontaneous
  Country: US (occurrence: US)
  Receive Date: 20140312
  Receipt Date: 20140312
  Transmission Date: 20141002
  Serious: No
  Sender: FDA-Public Use
  Company Number: US-INCYTE CORPORATION-2013IN001571

PATIENT
  Age: 58 Year
  Sex: Male

DRUGS (6)
  1. JAKAFI [Suspect]
     Indication: MYELOFIBROSIS
     Dosage: 15 MG, BID
     Route: 048
     Dates: start: 20120712, end: 20120917
  2. JAKAFI [Suspect]
     Dosage: 20 MG, BID
     Route: 048
     Dates: start: 20120917, end: 20130102
  3. ASA [Concomitant]
     Dosage: 81 MG, UNK
  4. FISH OIL [Concomitant]
  5. LEVOTHYROXINE [Concomitant]
  6. FOLIC ACID [Concomitant]

REACTIONS (3)
  - Platelet count increased [Unknown]
  - White blood cell count increased [Unknown]
  - Drug ineffective [Unknown]
